FAERS Safety Report 9118784 (Version 1)
Quarter: 2013Q1

REPORT INFORMATION
  Report Type: Spontaneous
  Country: US (occurrence: None)
  Receive Date: 20130221
  Receipt Date: 20130221
  Transmission Date: 20140127
  Serious: Yes (Other)
  Sender: FDA-Public Use
  Company Number: None

PATIENT
  Age: 45 Year
  Sex: Female
  Weight: 75.3 kg

DRUGS (2)
  1. IRINOTECAN [Suspect]
     Indication: COLON CANCER METASTATIC
     Dosage: 100MG FY95A 3-2015?40 MG FY94A 3-2015
     Route: 042
     Dates: start: 20130116, end: 20130220
  2. VECTIBIX [Concomitant]

REACTIONS (4)
  - Malaise [None]
  - Dyspnoea [None]
  - Chest pain [None]
  - Infusion related reaction [None]
